FAERS Safety Report 21122285 (Version 3)
Quarter: 2022Q3

REPORT INFORMATION
  Report Type: Spontaneous
  Country: DE (occurrence: DE)
  Receive Date: 20220723
  Receipt Date: 20220917
  Transmission Date: 20221027
  Serious: Yes (Death, Life-Threatening, Hospitalization, Other)
  Sender: FDA-Public Use
  Company Number: DE-TEVA-2020-DE-1203765

PATIENT
  Age: 60 Year
  Sex: Male

DRUGS (18)
  1. BORTEZOMIB [Suspect]
     Active Substance: BORTEZOMIB
     Indication: Immunosuppression
     Dosage: 11.3 MILLIGRAM/SQ. METER ( (THREE CYCLES AT A DOSE OF 1-1.3 MG/M2))
     Route: 065
  2. BORTEZOMIB [Suspect]
     Active Substance: BORTEZOMIB
     Indication: Encephalitis autoimmune
  3. IMMUNE GLOBULIN NOS [Suspect]
     Active Substance: IMMUNE GLOBULIN NOS
     Indication: Encephalitis autoimmune
     Dosage: 2 GRAM PER KILOGRAM
     Route: 042
  4. RITUXIMAB [Suspect]
     Active Substance: RITUXIMAB
     Indication: Encephalitis autoimmune
     Dosage: 1 GRAM ((BETWEEN 2 AND 3 MONTHS AFTER DISEASE EXACERBATION) )
     Route: 065
  5. RITUXIMAB [Suspect]
     Active Substance: RITUXIMAB
     Indication: Immunosuppression
     Dosage: 1 GRAM (7 MONTHS AFTER DISEASE EXACERBATION)
     Route: 065
  6. RITUXIMAB [Suspect]
     Active Substance: RITUXIMAB
     Indication: Plasma cell myeloma
     Dosage: 1 GRAM ((12 MONTHS AFTER DISEASE EXACERBATION)
     Route: 065
  7. PREDNISOLONE [Suspect]
     Active Substance: PREDNISOLONE
     Indication: Encephalitis autoimmune
     Dosage: UNK (RECEIVED FOR 2 AND HALF YEARS)
     Route: 048
  8. PREDNISOLONE [Suspect]
     Active Substance: PREDNISOLONE
     Dosage: 5 MILLIGRAM, ONCE A DAY (TAPERING-REGIMEN)
     Route: 048
  9. DARATUMUMAB [Suspect]
     Active Substance: DARATUMUMAB
     Indication: Encephalitis autoimmune
     Dosage: 16 MILLIGRAM/KILOGRAM, EVERY WEEK (8 CYCES)
     Route: 041
  10. DARATUMUMAB [Suspect]
     Active Substance: DARATUMUMAB
     Indication: Immunosuppression
     Dosage: 16 MILLIGRAM/KILOGRAM (REMAINING FIVE CYCLES)
     Route: 041
  11. METHYLPREDNISOLONE [Suspect]
     Active Substance: METHYLPREDNISOLONE
     Indication: Encephalitis autoimmune
     Dosage: UNK (5X500MG)
     Route: 065
  12. METHYLPREDNISOLONE [Suspect]
     Active Substance: METHYLPREDNISOLONE
     Indication: Product used for unknown indication
     Dosage: UNK (5X1G)
     Route: 065
  13. ACYCLOVIR [Concomitant]
     Active Substance: ACYCLOVIR
     Indication: Infection prophylaxis
     Dosage: 200 MILLIGRAM, ONCE A DAY
     Route: 065
  14. COTRIMOXAZOLE [Concomitant]
     Active Substance: SULFAMETHOXAZOLE\TRIMETHOPRIM
     Indication: Infection prophylaxis
     Dosage: 2880 MILLIGRAM, WEEK (960 MILLIGRAM (THREE TIMES A WEEK))
     Route: 065
  15. HUMAN PLASMA [Concomitant]
     Active Substance: HUMAN PLASMA
     Indication: Encephalitis autoimmune
     Dosage: UNK (6X PLASMA EXCHANGE)
     Route: 065
  16. HUMAN PLASMA [Concomitant]
     Active Substance: HUMAN PLASMA
     Dosage: UNK (25X PLASMA EXCHANGE)
     Route: 065
  17. HUMAN PLASMA [Concomitant]
     Active Substance: HUMAN PLASMA
     Dosage: UNK (12X PLASMA EXCHANGE)
     Route: 065
  18. HUMAN PLASMA [Concomitant]
     Active Substance: HUMAN PLASMA
     Dosage: UNK (8X PLASMA EXCHANGE)
     Route: 065

REACTIONS (20)
  - Encephalitis autoimmune [Fatal]
  - Cellulitis [Fatal]
  - Septic shock [Fatal]
  - Seizure [Fatal]
  - Bacterial infection [Fatal]
  - Infection [Fatal]
  - Cognitive disorder [Fatal]
  - Cerebellar ataxia [Fatal]
  - Urinary tract infection [Fatal]
  - Aggression [Fatal]
  - Rebound effect [Fatal]
  - Condition aggravated [Fatal]
  - Drug ineffective [Fatal]
  - Off label use [Fatal]
  - Breathing-related sleep disorder [Fatal]
  - Neuromyotonia [Fatal]
  - Bacterial sepsis [Fatal]
  - Therapeutic response unexpected [Fatal]
  - Product use in unapproved indication [Fatal]
  - Hand fracture [Fatal]

NARRATIVE: CASE EVENT DATE: 20170101
